FAERS Safety Report 6672490-5 (Version None)
Quarter: 2010Q2

REPORT INFORMATION
  Report Type: 
  Country: None (occurrence: None)
  Receive Date: 20100406
  Receipt Date: 20100324
  Transmission Date: 20101027
  Serious: Yes (Other)
  Sender: FDA-Public Use
  Company Number: 1000012927

PATIENT
  Age: 31 Year

DRUGS (1)
  1. ESCITALOPRAM [Suspect]
     Indication: DEPRESSION
     Dosage: 10 MG (10 MG, 1 IN 1 D), ORAL, 20 MG (20 MG, 1 IN 1 D) ORAL
     Route: 048

REACTIONS (3)
  - EUPHORIC MOOD [None]
  - MIDDLE INSOMNIA [None]
  - SUICIDAL IDEATION [None]
